FAERS Safety Report 13521270 (Version 1)
Quarter: 2017Q2

REPORT INFORMATION
  Report Type: Spontaneous
  Country: US (occurrence: US)
  Receive Date: 20170505
  Receipt Date: 20170505
  Transmission Date: 20170830
  Serious: No
  Sender: FDA-Public Use
  Company Number: None

PATIENT
  Age: 27 Year
  Sex: Female
  Weight: 67.5 kg

DRUGS (1)
  1. SERTRALINE [Suspect]
     Active Substance: SERTRALINE HYDROCHLORIDE
     Indication: ANXIETY
     Dosage: ?          QUANTITY:1 CAPSULE(S);?
     Route: 048
     Dates: start: 20170101, end: 20170417

REACTIONS (6)
  - Visual impairment [None]
  - Dizziness [None]
  - Maternal exposure timing unspecified [None]
  - Pupillary disorder [None]
  - Fatigue [None]
  - Nausea [None]

NARRATIVE: CASE EVENT DATE: 20170417
